FAERS Safety Report 6059059-0 (Version None)
Quarter: 2009Q1

REPORT INFORMATION
  Report Type: 
  Country: None (occurrence: None)
  Receive Date: 20090130
  Receipt Date: 20090119
  Transmission Date: 20090719
  Serious: Yes (Hospitalization)
  Sender: FDA-Public Use
  Company Number: B0555120A

PATIENT
  Age: 77 Year
  Sex: Male

DRUGS (7)
  1. AUGMENTIN '125' [Suspect]
     Indication: DRUG USE FOR UNKNOWN INDICATION
     Route: 048
     Dates: start: 20081119, end: 20081129
  2. PREVISCAN [Concomitant]
     Route: 065
  3. ATACAND [Concomitant]
     Route: 065
  4. EUPRESSYL [Concomitant]
     Route: 065
     Dates: end: 20081203
  5. LIPANTHYL [Concomitant]
     Route: 065
  6. ISOPTIN SR [Concomitant]
     Route: 065
  7. LASILIX [Concomitant]
     Route: 065

REACTIONS (14)
  - ATRIAL FIBRILLATION [None]
  - BRONCHIAL OBSTRUCTION [None]
  - EOSINOPHILIA [None]
  - FUNGAL INFECTION [None]
  - GENERAL PHYSICAL HEALTH DETERIORATION [None]
  - HYPOCAPNIA [None]
  - MUCOSAL EROSION [None]
  - ORAL FUNGAL INFECTION [None]
  - PYREXIA [None]
  - RASH [None]
  - RASH MACULO-PAPULAR [None]
  - STEVENS-JOHNSON SYNDROME [None]
  - TACHYCARDIA [None]
  - TEMPERATURE REGULATION DISORDER [None]
